FAERS Safety Report 4380560-X (Version None)
Quarter: 2004Q2

REPORT INFORMATION
  Report Type: 
  Country: None (occurrence: None)
  Receive Date: 20040615
  Receipt Date: 20031020
  Transmission Date: 20050107
  Serious: Yes (Other)
  Sender: FDA-Public Use
  Company Number: 2003US005599

PATIENT
  Age: 41 Year
  Sex: Male

DRUGS (3)
  1. PROGRAF [Suspect]
     Indication: BONE MARROW TRANSPLANT
  2. PROGRAF [Suspect]
     Indication: LIVER TRANSPLANT
  3. PROGRAF [Suspect]
     Indication: RENAL TRANSPLANT

REACTIONS (1)
  - MULTIPLE MYELOMA [None]
